FAERS Safety Report 15497731 (Version 2)
Quarter: 2019Q1

REPORT INFORMATION
  Report Type: Spontaneous
  Country: US (occurrence: US)
  Receive Date: 20181015
  Receipt Date: 20190322
  Transmission Date: 20190417
  Serious: Yes (Hospitalization)
  Sender: FDA-Public Use
  Company Number: US-ROCHE-2197493

PATIENT
  Age: 79 Year
  Sex: Male

DRUGS (1)
  1. ATEZOLIZUMAB. [Suspect]
     Active Substance: ATEZOLIZUMAB
     Indication: METASTATIC CARCINOMA OF THE BLADDER
     Route: 065

REACTIONS (2)
  - Ileal perforation [Recovering/Resolving]
  - Enterocolitis [Recovering/Resolving]
